FAERS Safety Report 8599046-1 (Version None)
Quarter: 2012Q3

REPORT INFORMATION
  Report Type: 
  Country: None (occurrence: None)
  Receive Date: 20120806
  Receipt Date: 20120806
  Transmission Date: 20120928
  Serious: Yes (Hospitalization)
  Sender: FDA-Public Use
  Company Number: None

PATIENT
  Age: 71 Year
  Sex: Male
  Weight: 55 kg

DRUGS (1)
  1. DABIGATRAN 150MG [Suspect]
     Indication: ATRIAL FIBRILLATION
     Dosage: 150MG BID PO RECENT, APPROX. 1 WEEK
     Route: 048

REACTIONS (5)
  - HAEMORRHAGE [None]
  - HYPOTENSION [None]
  - DYSPNOEA [None]
  - ANAEMIA [None]
  - SHOCK HAEMORRHAGIC [None]
